FAERS Safety Report 8604828 (Version 3)
Quarter: 2012Q4

REPORT INFORMATION
  Report Type: 
  Country: US (occurrence: US)
  Receive Date: 20120608
  Receipt Date: 20121106
  Transmission Date: 20130627
  Serious: Yes (Other)
  Sender: FDA-Public Use
  Company Number: US-ELI_LILLY_AND_COMPANY-US201205010814

PATIENT
  Age: 87 Year
  Sex: Female
  Weight: 90.7 kg

DRUGS (13)
  1. FORTEO [Suspect]
     Indication: OSTEOPOROSIS
     Dosage: 20 ug, qd
     Route: 058
     Dates: start: 201104, end: 201209
  2. LEVOTHYROXINE [Concomitant]
     Dosage: 112 ug, qd
  3. SIMVASTATIN [Concomitant]
     Dosage: 20 mg, qd
  4. METOPROLOL TARTRATE [Concomitant]
     Dosage: 100 mg, bid
  5. LASIX                              /00032601/ [Concomitant]
     Dosage: 20 mg, qod
  6. LISINOPRIL [Concomitant]
     Dosage: 10 mg, qd
  7. OXYBUTYNIN [Concomitant]
     Dosage: 10 mg, qd
  8. CALCIUM + VITAMIN D [Concomitant]
     Dosage: 500 mg, bid
  9. ALLEGRA [Concomitant]
     Dosage: 1 DF, qd
  10. VITAMIN D [Concomitant]
     Dosage: 1000 mg, qd
  11. OCUVITE LUTEIN [Concomitant]
     Dosage: 1 DF, qd
  12. GLUCOSAMINE + CHONDROITIN [Concomitant]
     Dosage: 2 DF, qd
  13. CENTRUM SILVER                     /01292501/ [Concomitant]

REACTIONS (6)
  - Upper limb fracture [Unknown]
  - Fall [Unknown]
  - Musculoskeletal disorder [Not Recovered/Not Resolved]
  - Joint dislocation [Unknown]
  - Fracture [Not Recovered/Not Resolved]
  - Drug ineffective [Unknown]
